FAERS Safety Report 5707599-3 (Version None)
Quarter: 2008Q2

REPORT INFORMATION
  Report Type: 
  Country: None (occurrence: None)
  Receive Date: 20080416
  Receipt Date: 20080404
  Transmission Date: 20081010
  Serious: Yes (Hospitalization, Other)
  Sender: FDA-Public Use
  Company Number: US-PFIZER INC-2008021847

PATIENT
  Sex: Male
  Weight: 94.545 kg

DRUGS (4)
  1. CHANTIX [Suspect]
     Indication: EX-SMOKER
     Dates: start: 20080201, end: 20080224
  2. DILANTIN [Interacting]
     Indication: CONVULSION
  3. TEGRETOL [Concomitant]
  4. ACETYLSALICYLIC ACID SRT [Concomitant]

REACTIONS (10)
  - ATAXIA [None]
  - BALANCE DISORDER [None]
  - CHEST PAIN [None]
  - CONFUSIONAL STATE [None]
  - DIZZINESS [None]
  - DRUG INTERACTION [None]
  - DYSPHEMIA [None]
  - HYPOAESTHESIA [None]
  - NEUROLOGICAL SYMPTOM [None]
  - VISION BLURRED [None]
